FAERS Safety Report 13546608 (Version 1)
Quarter: 2017Q2

REPORT INFORMATION
  Report Type: Spontaneous
  Country: US (occurrence: US)
  Receive Date: 20170515
  Receipt Date: 20170515
  Transmission Date: 20170830
  Serious: No
  Sender: FDA-Public Use
  Company Number: US-VIFOR (INTERNATIONAL) INC.-VIT-2017-00686

PATIENT
  Sex: Male

DRUGS (10)
  1. VELTASSA [Suspect]
     Active Substance: PATIROMER
  2. CRANBERRY. [Concomitant]
     Active Substance: CRANBERRY
  3. HYDRALAZINE HYDROCHLORIDE. [Concomitant]
     Active Substance: HYDRALAZINE HYDROCHLORIDE
  4. LANTUS [Concomitant]
     Active Substance: INSULIN GLARGINE
  5. MEDROL [Concomitant]
     Active Substance: METHYLPREDNISOLONE
  6. NITROSTAT [Concomitant]
     Active Substance: NITROGLYCERIN
  7. VELTASSA [Suspect]
     Active Substance: PATIROMER
     Indication: HYPERKALAEMIA
     Route: 048
     Dates: start: 20160930
  8. ALLOPURINOL. [Concomitant]
     Active Substance: ALLOPURINOL
  9. COREG [Concomitant]
     Active Substance: CARVEDILOL
  10. CALCITRIOL. [Concomitant]
     Active Substance: CALCITRIOL

REACTIONS (2)
  - Inappropriate schedule of drug administration [Unknown]
  - Abdominal pain upper [Unknown]
